FAERS Safety Report 10050318 (Version 1)
Quarter: 2014Q2

REPORT INFORMATION
  Report Type: Spontaneous
  Country: AU (occurrence: AU)
  Receive Date: 20140401
  Receipt Date: 20140401
  Transmission Date: 20141212
  Serious: Yes (Death, Other)
  Sender: FDA-Public Use
  Company Number: PHHY2014AU034216

PATIENT
  Age: 61 Year
  Sex: Female

DRUGS (2)
  1. WARFARIN [Suspect]
     Indication: PULMONARY EMBOLISM
  2. HEPARIN [Concomitant]
     Route: 041

REACTIONS (5)
  - Cerebral infarction [Fatal]
  - Skin necrosis [Unknown]
  - Skin ulcer [Unknown]
  - Thrombosis [Unknown]
  - Infarction [Unknown]
